FAERS Safety Report 25165656 (Version 1)
Quarter: 2025Q2

REPORT INFORMATION
  Report Type: Spontaneous
  Country: US (occurrence: US)
  Receive Date: 20250407
  Receipt Date: 20250407
  Transmission Date: 20250717
  Serious: No
  Sender: BIOGEN
  Company Number: US-BIOGEN-2024BI01258284

PATIENT
  Sex: Female

DRUGS (7)
  1. VUMERITY [Suspect]
     Active Substance: DIROXIMEL FUMARATE
     Indication: Multiple sclerosis
     Route: 050
     Dates: start: 20210607
  2. CITALOPRAM HYDROBROMIDE [Concomitant]
     Active Substance: CITALOPRAM HYDROBROMIDE
     Route: 050
  3. LEVETIRACETAM [Concomitant]
     Active Substance: LEVETIRACETAM
     Route: 050
  4. ATENOLOL [Concomitant]
     Active Substance: ATENOLOL
     Route: 050
  5. CALCIUM ACETATE [Concomitant]
     Active Substance: CALCIUM ACETATE
     Route: 050
  6. MULTIVITAMIN WOMENS [Concomitant]
     Route: 050
  7. SELENIUM [Concomitant]
     Active Substance: SELENIUM
     Route: 050

REACTIONS (3)
  - Product dose omission issue [Unknown]
  - Dementia [Unknown]
  - Cognitive disorder [Unknown]
